FAERS Safety Report 5219239-0 (Version None)
Quarter: 2007Q1

REPORT INFORMATION
  Report Type: 
  Country: None (occurrence: None)
  Receive Date: 20070124
  Receipt Date: 20070124
  Transmission Date: 20070707
  Serious: No
  Sender: FDA-Public Use
  Company Number: None

PATIENT
  Age: 65 Year
  Sex: Male
  Weight: 80.7403 kg

DRUGS (2)
  1. CEFEPIME [Suspect]
     Indication: SKIN INFECTION
     Dosage: 2 GRAMS  BID (Q12H)  IV
     Route: 042
     Dates: start: 20061228, end: 20070109
  2. CEFEPIME [Suspect]
     Indication: SKIN LESION
     Dosage: 2 GRAMS  BID (Q12H)  IV
     Route: 042
     Dates: start: 20061228, end: 20070109

REACTIONS (1)
  - DRUG ERUPTION [None]
